FAERS Safety Report 21448229 (Version 1)
Quarter: 2022Q4

REPORT INFORMATION
  Report Type: Spontaneous
  Country: US (occurrence: None)
  Receive Date: 20221011
  Receipt Date: 20221011
  Transmission Date: 20230112
  Serious: Yes (Hospitalization)
  Sender: FDA-Public Use
  Company Number: None

PATIENT
  Sex: Female
  Weight: 74.4 kg

DRUGS (2)
  1. JOLESSA [Suspect]
     Active Substance: ETHINYL ESTRADIOL\LEVONORGESTREL
     Indication: Contraception
     Dosage: OTHER QUANTITY : 0.15MG-30MCG;?FREQUENCY : DAILY;?
     Route: 048
     Dates: start: 2019
  2. DAYSEE [Suspect]
     Active Substance: ETHINYL ESTRADIOL\LEVONORGESTREL
     Indication: Contraception
     Dosage: OTHER QUANTITY : 0.15MG - 30MCG;?FREQUENCY : DAILY;?
     Route: 048
     Dates: start: 2019

REACTIONS (2)
  - Intermenstrual bleeding [None]
  - Muscle spasms [None]
